FAERS Safety Report 5354562-0 (Version None)
Quarter: 2007Q2

REPORT INFORMATION
  Report Type: 
  Country: None (occurrence: None)
  Receive Date: 20070612
  Receipt Date: 20070601
  Transmission Date: 20071010
  Serious: Yes (Hospitalization)
  Sender: FDA-Public Use
  Company Number: GB-BAXTER-2007BH004989

PATIENT
  Age: 60 Year
  Sex: Female

DRUGS (7)
  1. METRONIDAZOLE, UNSPECIFIED [Interacting]
     Indication: URINARY TRACT INFECTION
     Dosage: DOSE UNIT:UNKNOWN
     Route: 065
  2. CEPHALEXIN [Suspect]
     Indication: URINARY TRACT INFECTION
     Dosage: DOSE UNIT:UNKNOWN
     Route: 065
  3. TRIMETHOPRIM [Suspect]
     Indication: URINARY TRACT INFECTION
     Dosage: DOSE UNIT:UNKNOWN
     Route: 065
  4. WARFARIN SODIUM [Suspect]
     Indication: PULMONARY EMBOLISM
     Dosage: DOSE UNIT:UNKNOWN
     Route: 065
  5. ACEBUTOLOL [Concomitant]
  6. INDAPAMIDE [Concomitant]
  7. NIFEDIPINE [Concomitant]

REACTIONS (10)
  - DEEP VEIN THROMBOSIS [None]
  - DRUG INTERACTION [None]
  - HAEMOGLOBIN DECREASED [None]
  - HYPOVOLAEMIC SHOCK [None]
  - INTERNATIONAL NORMALISED RATIO INCREASED [None]
  - MUSCLE HAEMORRHAGE [None]
  - PYREXIA [None]
  - RETROPERITONEAL HAEMATOMA [None]
  - URETERIC OBSTRUCTION [None]
  - WHITE BLOOD CELL COUNT INCREASED [None]
